FAERS Safety Report 13416546 (Version 1)
Quarter: 2017Q2

REPORT INFORMATION
  Report Type: Spontaneous
  Country: US (occurrence: US)
  Receive Date: 20170406
  Receipt Date: 20170406
  Transmission Date: 20170830
  Serious: No
  Sender: FDA-Public Use
  Company Number: US-ARBOR PHARMACEUTICALS, LLC-US-2017ARB000201

PATIENT

DRUGS (7)
  1. IVERMECTIN. [Concomitant]
     Active Substance: IVERMECTIN
     Indication: PRODUCT USED FOR UNKNOWN INDICATION
     Dosage: UNK
     Route: 048
     Dates: start: 201701
  2. SKLICE [Suspect]
     Active Substance: IVERMECTIN
     Indication: LICE INFESTATION
     Dosage: UNK
     Route: 061
     Dates: start: 20170122
  3. IVERMECTIN. [Concomitant]
     Active Substance: IVERMECTIN
     Dosage: UNK
     Dates: start: 20170123
  4. SYNTHROID [Concomitant]
     Active Substance: LEVOTHYROXINE SODIUM
     Dosage: LOWERED TO 112 MCG, QD
     Dates: start: 20170118
  5. SKLICE [Suspect]
     Active Substance: IVERMECTIN
     Dosage: UNK
     Dates: start: 20170124
  6. SYNTHROID [Concomitant]
     Active Substance: LEVOTHYROXINE SODIUM
     Indication: THYROID DISORDER
     Dosage: UNK
  7. SKLICE [Suspect]
     Active Substance: IVERMECTIN
     Dosage: UNK
     Dates: start: 20170123

REACTIONS (3)
  - Multiple use of single-use product [Unknown]
  - Drug ineffective [Unknown]
  - Incorrect drug administration duration [Unknown]

NARRATIVE: CASE EVENT DATE: 20170122
